FAERS Safety Report 16795371 (Version 4)
Quarter: 2020Q2

REPORT INFORMATION
  Report Type: Spontaneous
  Country: FR (occurrence: FR)
  Receive Date: 20190911
  Receipt Date: 20200428
  Transmission Date: 20200713
  Serious: Yes (Other)
  Sender: FDA-Public Use
  Company Number: FR-PFIZER INC-2019388219

PATIENT
  Age: 60 Year
  Sex: Female
  Weight: 58 kg

DRUGS (3)
  1. EFFERALGAN [Concomitant]
     Active Substance: ACETAMINOPHEN
     Dosage: 1 G, THRICE DAILY
     Route: 048
  2. SIMVASTATINE [Concomitant]
     Active Substance: SIMVASTATIN
     Dosage: 10 MG, UNK
  3. ZOLEDRONIC ACID [Suspect]
     Active Substance: ZOLEDRONIC ACID
     Indication: BONE DECALCIFICATION
     Dosage: 1 DF, DAILY
     Route: 042
     Dates: start: 20190729

REACTIONS (14)
  - Thrombosis [Unknown]
  - Headache [Unknown]
  - Vision blurred [Unknown]
  - Conjunctival haemorrhage [Recovered/Resolved]
  - Eye pain [Recovered/Resolved]
  - Choroidal effusion [Unknown]
  - Facial pain [Unknown]
  - Photophobia [Unknown]
  - Swelling of eyelid [Unknown]
  - Eye inflammation [Unknown]
  - Ocular hyperaemia [Unknown]
  - Diplopia [Unknown]
  - Lacrimation increased [Unknown]
  - Nausea [Unknown]

NARRATIVE: CASE EVENT DATE: 20190731
